FAERS Safety Report 7681861-X (Version None)
Quarter: 2011Q3

REPORT INFORMATION
  Report Type: 
  Country: None (occurrence: None)
  Receive Date: 20110813
  Receipt Date: 20110801
  Transmission Date: 20111222
  Serious: Yes (Death, Hospitalization, Disabling, Other)
  Sender: FDA-Public Use
  Company Number: US-ELI_LILLY_AND_COMPANY-US201102003278

PATIENT
  Sex: Female

DRUGS (1)
  1. FORTEO [Suspect]
     Indication: OSTEOPOROSIS
     Dosage: 20 UG, DAILY (1/D)
     Route: 058
     Dates: start: 20110207

REACTIONS (10)
  - MITRAL VALVE INCOMPETENCE [None]
  - RHINORRHOEA [None]
  - FALL [None]
  - CARDIAC FAILURE CONGESTIVE [None]
  - PULMONARY OEDEMA [None]
  - APHASIA [None]
  - FATIGUE [None]
  - DYSPHAGIA [None]
  - DECREASED APPETITE [None]
  - NAUSEA [None]
